FAERS Safety Report 11786241 (Version 1)
Quarter: 2015Q4

REPORT INFORMATION
  Report Type: Report from Study
  Country: US (occurrence: US)
  Receive Date: 20151130
  Receipt Date: 20151130
  Transmission Date: 20160305
  Serious: No
  Sender: FDA-Public Use
  Company Number: US-CELGENEUS-USA-2015103608

PATIENT
  Sex: Male

DRUGS (3)
  1. THALOMID [Suspect]
     Active Substance: THALIDOMIDE
     Indication: PLASMA CELL MYELOMA
     Route: 048
  2. STEROIDS [Concomitant]
     Active Substance: UNSPECIFIED INGREDIENT
     Indication: PLASMA CELL MYELOMA
     Route: 065
  3. ^A CHEMO DRUG^ [Concomitant]
     Indication: PLASMA CELL MYELOMA
     Route: 065

REACTIONS (3)
  - Plasma cell myeloma [Unknown]
  - Paraproteinaemia [Unknown]
  - Facial pain [Unknown]
